FAERS Safety Report 9221641 (Version 1)
Quarter: 2013Q2

REPORT INFORMATION
  Report Type: Spontaneous
  Country: US (occurrence: US)
  Receive Date: 20130410
  Receipt Date: 20130410
  Transmission Date: 20140414
  Serious: Yes (Hospitalization, Other)
  Sender: FDA-Public Use
  Company Number: US-JNJFOC-20130401615

PATIENT
  Age: 74 Year
  Sex: Female
  Weight: 53.52 kg

DRUGS (4)
  1. NUCYNTA [Suspect]
     Indication: PAIN
     Dosage: TWO 50 MG TABLETS
     Route: 048
     Dates: start: 201303
  2. NUCYNTA [Suspect]
     Indication: PAIN
     Dosage: AS NEED
     Route: 048
     Dates: start: 20130226, end: 201303
  3. XARELTO [Concomitant]
     Indication: PROPHYLAXIS
     Route: 048
     Dates: start: 201302, end: 201303
  4. XARELTO [Concomitant]
     Indication: KNEE OPERATION
     Route: 048
     Dates: start: 201302, end: 201303

REACTIONS (7)
  - Emotional disorder [Recovered/Resolved]
  - Pain [Recovering/Resolving]
  - Withdrawal syndrome [Not Recovered/Not Resolved]
  - Nausea [Not Recovered/Not Resolved]
  - Muscle twitching [Not Recovered/Not Resolved]
  - Dizziness [Not Recovered/Not Resolved]
  - Dry mouth [Not Recovered/Not Resolved]
